FAERS Safety Report 7656021-9 (Version None)
Quarter: 2011Q3

REPORT INFORMATION
  Report Type: 
  Country: None (occurrence: None)
  Receive Date: 20110804
  Receipt Date: 20110727
  Transmission Date: 20111222
  Serious: Yes (Death, Life-Threatening, Hospitalization)
  Sender: FDA-Public Use
  Company Number: US-ROCHE-782821

PATIENT
  Sex: Female
  Weight: 68.1 kg

DRUGS (5)
  1. IXABEPILONE [Suspect]
     Route: 042
     Dates: end: 20110506
  2. BEVACIZUMAB [Suspect]
     Dosage: ON DAYS 1,15
     Route: 042
     Dates: start: 20101119
  3. BEVACIZUMAB [Suspect]
     Route: 042
     Dates: end: 20110506
  4. LEVOTHYROXINE SODIUM [Suspect]
     Route: 065
  5. IXABEPILONE [Suspect]
     Dosage: ON DAYS 1,8 AND 15
     Route: 042
     Dates: start: 20101119

REACTIONS (6)
  - PLEURAL EFFUSION [None]
  - RESPIRATORY FAILURE [None]
  - DYSPNOEA [None]
  - LOCALISED OEDEMA [None]
  - DYSPHAGIA [None]
  - FATIGUE [None]
